FAERS Safety Report 5530797-9 (Version None)
Quarter: 2007Q4

REPORT INFORMATION
  Report Type: 
  Country: None (occurrence: None)
  Receive Date: 20071130
  Receipt Date: 19960516
  Transmission Date: 20080405
  Serious: Yes (Disabling)
  Sender: FDA-Public Use
  Company Number: US-MERCK-95121591

PATIENT
  Age: 56 Year
  Sex: Female

DRUGS (1)
  1. MEVACOR [Suspect]
     Indication: HYPERCHOLESTEROLAEMIA
     Route: 048
     Dates: start: 19900101, end: 19940801

REACTIONS (3)
  - AMYOTROPHIC LATERAL SCLEROSIS [None]
  - DYSPHAGIA [None]
  - SPEECH DISORDER [None]
